FAERS Safety Report 19743583 (Version 2)
Quarter: 2021Q3

REPORT INFORMATION
  Report Type: Spontaneous
  Country: US (occurrence: US)
  Receive Date: 20210825
  Receipt Date: 20210919
  Transmission Date: 20211014
  Serious: No
  Sender: FDA-Public Use
  Company Number: US-SA-2021SA280314

PATIENT
  Age: 58 Year
  Sex: Female

DRUGS (1)
  1. CABLIVI [Suspect]
     Active Substance: CAPLACIZUMAB-YHDP
     Indication: THROMBOTIC MICROANGIOPATHY
     Dosage: 11 MG, QD
     Route: 058
     Dates: start: 20210810

REACTIONS (3)
  - Haemoglobin decreased [Unknown]
  - Platelet count increased [Recovered/Resolved]
  - ADAMTS13 activity abnormal [Unknown]

NARRATIVE: CASE EVENT DATE: 2021
